FAERS Safety Report 24660930 (Version 2)
Quarter: 2024Q4

REPORT INFORMATION
  Report Type: Spontaneous
  Country: US (occurrence: US)
  Receive Date: 20241125
  Receipt Date: 20241211
  Transmission Date: 20250115
  Serious: Yes (Other)
  Sender: AVADEL CNS PHARMACEUTICALS, LLC
  Company Number: US-AVADEL CNS PHARMACEUTICALS, LLC-2024AVA02061

PATIENT
  Age: 52 Year
  Sex: Female
  Weight: 69.841 kg

DRUGS (4)
  1. LUMRYZ [Suspect]
     Active Substance: SODIUM OXYBATE
     Indication: Narcolepsy
     Dosage: 6 G, ONCE NIGHTLY
     Route: 048
     Dates: start: 202410, end: 20241123
  2. SERTRALINE [Concomitant]
     Active Substance: SERTRALINE HYDROCHLORIDE
     Dosage: 150 MG, 1X/DAY, IN THE MORNING
  3. LACTASE [Concomitant]
     Active Substance: LACTASE
     Dosage: UNK, AS NEEDED
  4. GI IMMUNE SUPPORT [Concomitant]
     Dosage: UNK

REACTIONS (3)
  - Syncope [Unknown]
  - Feeling jittery [Recovered/Resolved]
  - Insomnia [Not Recovered/Not Resolved]

NARRATIVE: CASE EVENT DATE: 20241001
